FAERS Safety Report 9406862 (Version 1)
Quarter: 2013Q3

REPORT INFORMATION
  Report Type: Report from Study
  Country: MX (occurrence: MX)
  Receive Date: 20130718
  Receipt Date: 20130718
  Transmission Date: 20140515
  Serious: Yes (Other)
  Sender: FDA-Public Use
  Company Number: PHHY2013MX075665

PATIENT
  Age: 59 Year
  Sex: Female

DRUGS (2)
  1. TEGRETOL [Suspect]
     Indication: EPILEPSY
     Dosage: 0.5 DF, DAILY (1/4 TABLET IN THE MORNING AND 1/4 TABLET AT NIGHT)
     Route: 048
     Dates: start: 201306
  2. OMEPRAZOLE [Concomitant]
     Indication: GASTRITIS
     Dosage: 1 DF, DAILY
     Dates: start: 2012

REACTIONS (3)
  - Arthritis [Not Recovered/Not Resolved]
  - Depression [Unknown]
  - Wrong technique in drug usage process [Unknown]
